FAERS Safety Report 24405280 (Version 1)
Quarter: 2024Q4

REPORT INFORMATION
  Report Type: Spontaneous
  Country: US (occurrence: None)
  Receive Date: 20241004
  Receipt Date: 20241004
  Transmission Date: 20250115
  Serious: Yes (Other)
  Sender: Public
  Company Number: None

PATIENT
  Age: 67 Year
  Sex: Male
  Weight: 94.5 kg

DRUGS (10)
  1. MOUNJARO [Suspect]
     Active Substance: TIRZEPATIDE
     Indication: Type 2 diabetes mellitus
     Dosage: OTHER QUANTITY : 1 INJECTION(S);?OTHER FREQUENCY : ONCE A WEEK;?
     Route: 058
     Dates: start: 20221002, end: 20240819
  2. Metatroplol [Concomitant]
  3. VASCEPA [Concomitant]
     Active Substance: ICOSAPENT ETHYL
  4. OMEPRAZOLE [Concomitant]
     Active Substance: OMEPRAZOLE
  5. RANEXA [Concomitant]
     Active Substance: RANOLAZINE
  6. VITAMINS [Concomitant]
     Active Substance: VITAMINS
  7. BERBINE [Concomitant]
     Active Substance: BERBINE
  8. MAGNESIUM [Concomitant]
     Active Substance: MAGNESIUM
  9. B12 [Concomitant]
  10. CHROMIUM [Concomitant]
     Active Substance: CHROMIC CHLORIDE\CHROMIUM

REACTIONS (9)
  - Muscle atrophy [None]
  - Bone demineralisation [None]
  - Asthenia [None]
  - Immobile [None]
  - Gait inability [None]
  - Exostosis [None]
  - Tendon disorder [None]
  - Barrett^s oesophagus [None]
  - Dysphonia [None]

NARRATIVE: CASE EVENT DATE: 20240819
